FAERS Safety Report 23553979 (Version 6)
Quarter: 2025Q1

REPORT INFORMATION
  Report Type: Report from Study
  Country: CA (occurrence: CA)
  Receive Date: 20240222
  Receipt Date: 20250221
  Transmission Date: 20250409
  Serious: Yes (Other)
  Sender: TAKEDA
  Company Number: CA-TAKEDA-2023TUS105725

PATIENT
  Age: 87 Year
  Sex: Female

DRUGS (4)
  1. VEDOLIZUMAB [Suspect]
     Active Substance: VEDOLIZUMAB
     Indication: Crohn^s disease
  2. VEDOLIZUMAB [Suspect]
     Active Substance: VEDOLIZUMAB
  3. VEDOLIZUMAB [Suspect]
     Active Substance: VEDOLIZUMAB
  4. VEDOLIZUMAB [Suspect]
     Active Substance: VEDOLIZUMAB
     Dosage: 300 MILLIGRAM, Q4WEEKS
     Dates: start: 20240509

REACTIONS (11)
  - Intestinal obstruction [Unknown]
  - Diarrhoea [Recovering/Resolving]
  - Faecal volume decreased [Unknown]
  - Abdominal pain upper [Recovering/Resolving]
  - Faeces soft [Recovering/Resolving]
  - Therapeutic reaction time decreased [Unknown]
  - Drug ineffective [Unknown]
  - Off label use [Unknown]
  - Dizziness [Unknown]
  - Rhinorrhoea [Recovered/Resolved]
  - Abdominal pain [Recovering/Resolving]

NARRATIVE: CASE EVENT DATE: 20231026
